FAERS Safety Report 19076033 (Version 1)
Quarter: 2021Q1

REPORT INFORMATION
  Report Type: Spontaneous
  Country: PL (occurrence: PL)
  Receive Date: 20210331
  Receipt Date: 20210331
  Transmission Date: 20210420
  Serious: Yes (Other)
  Sender: FDA-Public Use
  Company Number: PL-CELLTRION INC.-2021PL004090

PATIENT

DRUGS (3)
  1. INFLIXIMAB (UNKNOWN) [Suspect]
     Active Substance: INFLIXIMAB
     Indication: PSORIASIS
     Dosage: DOSE: 5 MG PER KG BODY WEIGHT (LAST DATE: ???JUN?2019)
     Route: 065
  2. METHOTREXATE. [Suspect]
     Active Substance: METHOTREXATE
     Indication: PSORIASIS
     Dosage: 15 MG, 1/WEEK
     Route: 065
     Dates: start: 201311, end: 201404
  3. ACITRETIN. [Suspect]
     Active Substance: ACITRETIN
     Indication: PSORIASIS
     Dosage: 50 MG, DAILY
     Route: 065
     Dates: start: 201311, end: 201404

REACTIONS (8)
  - Hepatic steatosis [Unknown]
  - Tuberculin test positive [Unknown]
  - Cholangiocarcinoma [Unknown]
  - Hepatic cancer [Unknown]
  - Tonsillar inflammation [Unknown]
  - Pulmonary fibrosis [Unknown]
  - Psoriasis [Unknown]
  - Drug ineffective [Unknown]

NARRATIVE: CASE EVENT DATE: 2014
